FAERS Safety Report 8960576 (Version 1)
Quarter: 2012Q4

REPORT INFORMATION
  Report Type: Spontaneous
  Country: DE (occurrence: None)
  Receive Date: 20121203
  Receipt Date: 20121203
  Transmission Date: 20130627
  Serious: Yes (Hospitalization, Other)
  Sender: FDA-Public Use
  Company Number: DE-021516

PATIENT
  Age: 77 Year
  Sex: Female

DRUGS (10)
  1. CHLORAMBUCIL [Suspect]
     Indication: CHRONIC LYMPHOCYTIC LEUKEMIA
     Dosage: at days 1-7 every 28 days.
     Route: 048
  2. SIMVACARD(SIMVESTATIN (UNKNOWN) [Concomitant]
  3. METOBETA (MELOPROLOL)(UNKNOWN) [Concomitant]
  4. RAMIPRIL (RAMIPRIL)(UNKNOWN) [Concomitant]
  5. ASS  100 (ACECYLSALICYLIC ACID) (UNKNOWN) [Concomitant]
  6. AMLODIPINE(AMLODIPINE)(UNKNOWN) [Concomitant]
  7. ALLO (ALLPURINOL)(UNKNOWN) [Concomitant]
  8. TORASAMID (TORASEMIDE)(UNKNOWN) [Concomitant]
  9. RASILEZ (ALISKIREN)(UNKNOWN) [Concomitant]
  10. PANTOZOL [Concomitant]

REACTIONS (2)
  - Atrioventricular block complete [None]
  - Pleural effusion [None]
